FAERS Safety Report 25158389 (Version 2)
Quarter: 2025Q3

REPORT INFORMATION
  Report Type: Spontaneous
  Country: EU (occurrence: EU)
  Receive Date: 20250404
  Receipt Date: 20250806
  Transmission Date: 20251021
  Serious: Yes (Other)
  Sender: ROCHE
  Company Number: EU-ROCHE-10000243808

PATIENT
  Age: 70 Year
  Sex: Female

DRUGS (4)
  1. TAMIFLU [Suspect]
     Active Substance: OSELTAMIVIR PHOSPHATE
     Indication: Influenza
     Route: 065
  2. METFORMIN HYDROCHLORIDE [Concomitant]
     Active Substance: METFORMIN HYDROCHLORIDE
  3. SULODEXIDE [Concomitant]
     Active Substance: SULODEXIDE
  4. VINPOCETINE [Concomitant]
     Active Substance: VINPOCETINE

REACTIONS (1)
  - Chest pain [Recovered/Resolved]
